FAERS Safety Report 9748821 (Version 3)
Quarter: 2014Q1

REPORT INFORMATION
  Report Type: Spontaneous
  Country: US (occurrence: US)
  Receive Date: 20131212
  Receipt Date: 20140312
  Transmission Date: 20141002
  Serious: No
  Sender: FDA-Public Use
  Company Number: US-INCYTE CORPORATION-2013IN001659

PATIENT
  Age: 73 Year
  Sex: Female

DRUGS (16)
  1. JAKAFI [Suspect]
     Indication: MYELOFIBROSIS
     Dosage: 20 MG, BID
     Route: 048
     Dates: start: 20130618
  2. JAKAFI [Suspect]
     Dosage: 10 MG, BID
     Route: 048
  3. OMEPRAZOLE [Concomitant]
  4. DILTIAZEM [Concomitant]
  5. ASPIRIN [Concomitant]
     Dosage: 81 MG
  6. OCUVITE [Concomitant]
  7. WELCHOL [Concomitant]
  8. GLUCOSAMINE/CHONDROITIN [Concomitant]
  9. FUROSEMIDE [Concomitant]
  10. LORATADINE [Concomitant]
  11. ULTRAM [Concomitant]
  12. ADVAIR [Concomitant]
  13. ALBUTEROL INHALER [Concomitant]
  14. FLUTICASONE [Concomitant]
  15. BROVANA NEBULIZER [Concomitant]
  16. BUDESONIDE [Concomitant]

REACTIONS (9)
  - Back pain [Unknown]
  - Arthralgia [Unknown]
  - Diarrhoea [Unknown]
  - Fatigue [Not Recovered/Not Resolved]
  - Dry throat [Unknown]
  - Nausea [Unknown]
  - Urinary tract infection [Unknown]
  - Contusion [Unknown]
  - Headache [Unknown]
